FAERS Safety Report 5492032-X (Version None)
Quarter: 2007Q4

REPORT INFORMATION
  Report Type: 
  Country: None (occurrence: None)
  Receive Date: 20071018
  Receipt Date: 20071018
  Transmission Date: 20080405
  Serious: Yes (Hospitalization)
  Sender: FDA-Public Use
  Company Number: None

PATIENT
  Sex: Female
  Weight: 50 kg

DRUGS (2)
  1. FLUOXETINE HCL [Suspect]
     Indication: DEPRESSION
     Dosage: 40 MG DAILY PO
     Route: 048
  2. SEROQUEL [Suspect]
     Dosage: 100 MG DAILY PO
     Route: 048

REACTIONS (5)
  - EDUCATIONAL PROBLEM [None]
  - ELECTROCARDIOGRAM QT PROLONGED [None]
  - EMOTIONAL DISORDER [None]
  - INCORRECT DOSE ADMINISTERED [None]
  - MENTAL STATUS CHANGES [None]
